FAERS Safety Report 8504137-7 (Version None)
Quarter: 2012Q3

REPORT INFORMATION
  Report Type: 
  Country: None (occurrence: None)
  Receive Date: 20120711
  Receipt Date: 20120626
  Transmission Date: 20120928
  Serious: Yes (Other)
  Sender: FDA-Public Use
  Company Number: FI-009507513-1207FIN000734

PATIENT

DRUGS (3)
  1. PEGASYS [Suspect]
     Indication: HEPATITIS C
     Dosage: UNK
  2. REBETOL [Suspect]
     Indication: HEPATITIS C
     Dosage: UNK
  3. COPEGUS [Suspect]
     Indication: HEPATITIS C

REACTIONS (3)
  - RETINAL DISORDER [None]
  - RASH PRURITIC [None]
  - NEUTROPENIA [None]
